FAERS Safety Report 17995093 (Version 6)
Quarter: 2020Q3

REPORT INFORMATION
  Report Type: Spontaneous
  Country: US (occurrence: US)
  Receive Date: 20200708
  Receipt Date: 20200819
  Transmission Date: 20201103
  Serious: No
  Sender: FDA-Public Use
  Company Number: US-UNITED THERAPEUTICS-UNT-2020-010016

PATIENT
  Age: 45 Year
  Sex: Female
  Weight: 66.67 kg

DRUGS (7)
  1. REMODULIN [Suspect]
     Active Substance: TREPROSTINIL
     Indication: PULMONARY ARTERIAL HYPERTENSION
     Dosage: 0.002 ?G/KG, CONTINUING
     Route: 058
     Dates: start: 20200630
  2. REMODULIN [Suspect]
     Active Substance: TREPROSTINIL
     Dosage: 0.010 ?G/KG, CONTINUING
     Route: 058
  3. AMBRISENTAN [Concomitant]
     Active Substance: AMBRISENTAN
     Indication: PRODUCT USED FOR UNKNOWN INDICATION
     Dosage: UNK
     Route: 065
  4. REMODULIN [Suspect]
     Active Substance: TREPROSTINIL
     Dosage: 0.016 ?G/KG, CONTINUING
     Route: 058
  5. REMODULIN [Suspect]
     Active Substance: TREPROSTINIL
     Dosage: UNK, CONTINUING
     Route: 058
     Dates: start: 20200724
  6. SILDENAFIL CITRATE. [Concomitant]
     Active Substance: SILDENAFIL CITRATE
     Indication: PRODUCT USED FOR UNKNOWN INDICATION
     Dosage: UNK
     Route: 065
  7. REMODULIN [Suspect]
     Active Substance: TREPROSTINIL
     Dosage: 0.008 ?G/KG, CONTINUING
     Route: 058
     Dates: start: 2020

REACTIONS (22)
  - Nausea [Not Recovered/Not Resolved]
  - Infusion site erythema [Unknown]
  - Swelling face [Unknown]
  - Myalgia [Unknown]
  - Abdominal distension [Unknown]
  - Dizziness [Unknown]
  - Infusion site vesicles [Unknown]
  - Device dislocation [Unknown]
  - Mobility decreased [Unknown]
  - Pain [Unknown]
  - Weight increased [Unknown]
  - Headache [Unknown]
  - Heart rate increased [Unknown]
  - Feeling abnormal [Unknown]
  - Device adhesion issue [Unknown]
  - Infusion site pain [Unknown]
  - Dyspnoea exertional [Unknown]
  - Blood pressure decreased [Unknown]
  - Eye pain [Unknown]
  - Limb discomfort [Unknown]
  - Pain in extremity [Recovering/Resolving]
  - Infusion site extravasation [Unknown]

NARRATIVE: CASE EVENT DATE: 2020
